FAERS Safety Report 5798715-6 (Version None)
Quarter: 2008Q3

REPORT INFORMATION
  Report Type: 
  Country: None (occurrence: None)
  Receive Date: 20080702
  Receipt Date: 20080625
  Transmission Date: 20090109
  Serious: Yes (Other)
  Sender: FDA-Public Use
  Company Number: BR-ABBOTT-08P-020-0459611-00

PATIENT
  Age: 23 Year
  Sex: Female
  Weight: 33 kg

DRUGS (3)
  1. DEPAKENE [Suspect]
     Indication: CONVULSION
     Route: 048
     Dates: start: 20050101
  2. PRIMIDONE [Concomitant]
     Indication: CONVULSION
     Route: 048
  3. CLOBAZAM [Concomitant]
     Indication: CONVULSION
     Route: 048

REACTIONS (3)
  - CONVULSION [None]
  - DRUG INEFFECTIVE [None]
  - EAR INFECTION [None]
